FAERS Safety Report 7372654-1 (Version None)
Quarter: 2011Q1

REPORT INFORMATION
  Report Type: 
  Country: None (occurrence: None)
  Receive Date: 20110324
  Receipt Date: 20110317
  Transmission Date: 20110831
  Serious: Yes (Other)
  Sender: FDA-Public Use
  Company Number: US-BAYER-2011-024168

PATIENT
  Sex: Female

DRUGS (3)
  1. OCELLA [Suspect]
  2. YAZ [Suspect]
     Route: 048
  3. YASMIN [Suspect]
     Route: 048

REACTIONS (2)
  - CHOLECYSTECTOMY [None]
  - INJURY [None]
